FAERS Safety Report 5205793-1 (Version None)
Quarter: 2007Q1

REPORT INFORMATION
  Report Type: 
  Country: None (occurrence: None)
  Receive Date: 20070111
  Receipt Date: 20070102
  Transmission Date: 20070707
  Serious: Yes (Hospitalization)
  Sender: FDA-Public Use
  Company Number: GB-ROCHE-477317

PATIENT
  Age: 21 Year
  Sex: Female

DRUGS (1)
  1. XENICAL [Suspect]
     Indication: OVERWEIGHT
     Route: 065
     Dates: start: 20060115

REACTIONS (5)
  - ANXIETY [None]
  - CHOLELITHIASIS [None]
  - IRRITABLE BOWEL SYNDROME [None]
  - STRESS [None]
  - VERTIGO [None]
